FAERS Safety Report 14054367 (Version 1)
Quarter: 2017Q4

REPORT INFORMATION
  Report Type: Spontaneous
  Country: FR (occurrence: FR)
  Receive Date: 20171006
  Receipt Date: 20171006
  Transmission Date: 20180321
  Serious: Yes (Hospitalization, Disabling, Other)
  Sender: FDA-Public Use
  Company Number: FR-MERCK KGAA-2028941

PATIENT
  Age: 53 Year
  Sex: Female

DRUGS (4)
  1. NOVOTHYROX [Suspect]
     Active Substance: LEVOTHYROXINE SODIUM
     Dates: start: 201708
  2. NOVOTHYROX [Suspect]
     Active Substance: LEVOTHYROXINE SODIUM
     Indication: THYROID DISORDER
     Dates: start: 201707, end: 20170820
  3. NOVOTHYROX [Suspect]
     Active Substance: LEVOTHYROXINE SODIUM
     Dates: start: 201709
  4. NOVOTHYROX [Suspect]
     Active Substance: LEVOTHYROXINE SODIUM
     Dates: start: 201709

REACTIONS (27)
  - Suicidal ideation [Not Recovered/Not Resolved]
  - Vomiting [Not Recovered/Not Resolved]
  - Weight decreased [Not Recovered/Not Resolved]
  - Blood thyroid stimulating hormone decreased [Not Recovered/Not Resolved]
  - Hospitalisation [None]
  - Spinal column injury [None]
  - Headache [Not Recovered/Not Resolved]
  - Diarrhoea [None]
  - Tremor [Not Recovered/Not Resolved]
  - Gait inability [Not Recovered/Not Resolved]
  - Head injury [None]
  - Asthenia [None]
  - Fall [None]
  - Fatigue [Not Recovered/Not Resolved]
  - Dizziness [None]
  - Feeling drunk [None]
  - Drug intolerance [None]
  - Insomnia [Not Recovered/Not Resolved]
  - Abdominal pain [None]
  - Syncope [None]
  - Myalgia [None]
  - Chest discomfort [None]
  - Decreased appetite [Not Recovered/Not Resolved]
  - Feeling abnormal [Not Recovered/Not Resolved]
  - Visual impairment [Not Recovered/Not Resolved]
  - Dysphonia [Not Recovered/Not Resolved]
  - Wrong technique in product usage process [None]

NARRATIVE: CASE EVENT DATE: 2017
